FAERS Safety Report 9312412 (Version 1)
Quarter: 2013Q2

REPORT INFORMATION
  Report Type: Spontaneous
  Country: US (occurrence: US)
  Receive Date: 20130528
  Receipt Date: 20130528
  Transmission Date: 20140414
  Serious: No
  Sender: FDA-Public Use
  Company Number: US-BRISTOL-MYERS SQUIBB COMPANY-18703934

PATIENT
  Age: 76 Year
  Sex: Female
  Weight: 98.86 kg

DRUGS (10)
  1. KOMBIGLYZE XR [Suspect]
     Indication: TYPE 2 DIABETES MELLITUS
     Dosage: 1DF=2.5MG/1000MG
  2. RAMIPRIL [Concomitant]
     Indication: BLOOD PRESSURE
     Dosage: BID FOR BLOOD PRESSURE.
  3. DIOVAN [Concomitant]
     Dosage: 1DF=160/12.5MG DAILY.
  4. CORGARD [Concomitant]
  5. B12 [Concomitant]
  6. LEVOTHYROXINE [Concomitant]
  7. VITAMIN D [Concomitant]
  8. ASPIRIN [Concomitant]
     Dosage: FORMULATION-BABY ASPIRIN
  9. CRESTOR [Concomitant]
  10. BYETTA [Concomitant]
     Dosage: FORMULATION-YETTA 250 MCG INJ PEN?FREQUNCY-1HR BEFR MEALS,1HR BEFR BREAKFAST,1HR BEFR DINNER

REACTIONS (3)
  - Weight decreased [Unknown]
  - Pain [Unknown]
  - Muscular weakness [Unknown]
